FAERS Safety Report 7107310 (Version 3)
Quarter: 2013Q3

REPORT INFORMATION
  Report Type: Spontaneous
  Country: FR (occurrence: FR)
  Receive Date: 20090908
  Receipt Date: 20130918
  Transmission Date: 20140515
  Serious: Yes (Hospitalization, Other)
  Sender: FDA-Public Use
  Company Number: PHHY2009FR37166

PATIENT
  Age: 72 Year
  Sex: Female

DRUGS (12)
  1. ACLASTA [Suspect]
     Indication: OSTEOPOROTIC FRACTURE
     Dosage: 5 MG, UNK
     Route: 042
     Dates: start: 200901, end: 2009
  2. STILNOX [Concomitant]
  3. ESCITALOPRAM [Concomitant]
  4. PARACETAMOL [Concomitant]
  5. LYRICA [Concomitant]
  6. BETASERC [Concomitant]
     Dosage: UNK UKN, UNK
  7. CACIT D3 [Concomitant]
     Dosage: 1 DF, DAILY
  8. SERESTA [Concomitant]
     Dosage: 10 MG, TID
  9. EFFERALGAN [Concomitant]
     Dosage: 1 G, TID
  10. EFFERALGAN CODEIN [Concomitant]
     Dosage: 1 DF, AT NIGHT
  11. VASTAREL [Concomitant]
     Dosage: 20 MG, TID
  12. PROTOS (STRONTIUM RANELATE) [Concomitant]

REACTIONS (34)
  - Lupus vasculitis [Unknown]
  - Rash [Unknown]
  - Skin fibrosis [Unknown]
  - Skin atrophy [Unknown]
  - Lymphocytic infiltration [Unknown]
  - Necrosis [Unknown]
  - Vasculitis [Unknown]
  - Erythema [Unknown]
  - Lividity [Unknown]
  - Haemorrhage [Unknown]
  - Chillblains [Unknown]
  - Parkinson^s disease [Not Recovered/Not Resolved]
  - Hypertonia [Unknown]
  - Extrapyramidal disorder [Unknown]
  - Depression [Unknown]
  - Musculoskeletal stiffness [Unknown]
  - Cogwheel rigidity [Unknown]
  - Vasculitis necrotising [Recovering/Resolving]
  - Antinuclear antibody increased [Recovering/Resolving]
  - Anti-SS-A antibody positive [Recovering/Resolving]
  - Cyanosis [Unknown]
  - Sjogren^s syndrome [Unknown]
  - Cerebrovascular accident [Unknown]
  - Rotator cuff syndrome [Unknown]
  - Musculoskeletal pain [Unknown]
  - Body height decreased [Unknown]
  - Decreased appetite [Unknown]
  - Weight decreased [Unknown]
  - Xerophthalmia [Unknown]
  - Sialoadenitis [Unknown]
  - Dry mouth [Unknown]
  - Pain in extremity [Unknown]
  - Headache [Unknown]
  - Asthenia [Unknown]
